FAERS Safety Report 7417787-6 (Version None)
Quarter: 2011Q2

REPORT INFORMATION
  Report Type: 
  Country: None (occurrence: None)
  Receive Date: 20110415
  Receipt Date: 20110401
  Transmission Date: 20111010
  Serious: No
  Sender: FDA-Public Use
  Company Number: US-B.I. PHARMACEUTICALS,INC./RIDGEFIELD-2011-BP-09839BP

PATIENT
  Sex: Female

DRUGS (2)
  1. COZAAR [Concomitant]
     Indication: HYPERTENSION
  2. PRADAXA [Suspect]
     Indication: ATRIAL FIBRILLATION
     Dosage: 300 MG
     Route: 048
     Dates: start: 20110310

REACTIONS (5)
  - PAIN [None]
  - PARAESTHESIA ORAL [None]
  - GLOSSODYNIA [None]
  - FATIGUE [None]
  - FEELING ABNORMAL [None]
